FAERS Safety Report 7972590-3 (Version None)
Quarter: 2011Q4

REPORT INFORMATION
  Report Type: 
  Country: None (occurrence: None)
  Receive Date: 20111213
  Receipt Date: 20111201
  Transmission Date: 20120403
  Serious: Yes (Other)
  Sender: FDA-Public Use
  Company Number: CA-JNJFOC-20111202621

PATIENT
  Sex: Male
  Weight: 99 kg

DRUGS (2)
  1. REMICADE [Suspect]
     Indication: CROHN'S DISEASE
     Route: 042
     Dates: start: 20091101
  2. METHOTREXATE [Concomitant]
     Route: 048

REACTIONS (2)
  - DIVERTICULITIS [None]
  - GASTROINTESTINAL HAEMORRHAGE [None]
